FAERS Safety Report 8151507-5 (Version None)
Quarter: 2012Q1

REPORT INFORMATION
  Report Type: 
  Country: None (occurrence: None)
  Receive Date: 20120220
  Receipt Date: 20120217
  Transmission Date: 20120608
  Serious: Yes (Death, Life-Threatening)
  Sender: FDA-Public Use
  Company Number: VE-ROCHE-1041162

PATIENT
  Age: 73 Year
  Sex: Female

DRUGS (1)
  1. MABTHERA [Suspect]
     Indication: NON-HODGKIN'S LYMPHOMA
     Route: 042
     Dates: start: 20120215, end: 20120215

REACTIONS (1)
  - DEATH [None]
